FAERS Safety Report 24359128 (Version 2)
Quarter: 2024Q4

REPORT INFORMATION
  Report Type: Spontaneous
  Country: NL (occurrence: NL)
  Receive Date: 20240924
  Receipt Date: 20241004
  Transmission Date: 20250114
  Serious: Yes (Other)
  Sender: TEVA
  Company Number: NL-TEVA-VS-3244883

PATIENT
  Age: 27 Year
  Sex: Male

DRUGS (5)
  1. TESTOSTERONE [Interacting]
     Active Substance: TESTOSTERONE
     Indication: Product used for unknown indication
     Route: 065
  2. NANDROLONE [Interacting]
     Active Substance: NANDROLONE
     Indication: Product used for unknown indication
     Route: 065
  3. DICLOFENAC SODIUM [Concomitant]
     Active Substance: DICLOFENAC SODIUM
     Indication: Product used for unknown indication
     Dosage: OCCASIONAL
     Route: 065
  4. VITAMINS NOS [Concomitant]
     Active Substance: VITAMINS
     Indication: Vitamin supplementation
     Dosage: MULTIVITAMIN
     Route: 065
  5. CABOTEGRAVIR\RILPIVIRINE [Interacting]
     Active Substance: CABOTEGRAVIR\RILPIVIRINE
     Indication: HIV infection
     Dosage: LONG-ACTING
     Route: 065
     Dates: start: 20230425, end: 2023

REACTIONS (4)
  - Pathogen resistance [Unknown]
  - Drug interaction [Unknown]
  - Drug abuse [Unknown]
  - Virologic failure [Unknown]

NARRATIVE: CASE EVENT DATE: 20230101
